FAERS Safety Report 6016548-2 (Version None)
Quarter: 2008Q4

REPORT INFORMATION
  Report Type: 
  Country: None (occurrence: None)
  Receive Date: 20081218
  Receipt Date: 20081203
  Transmission Date: 20090506
  Serious: Yes (Other)
  Sender: FDA-Public Use
  Company Number: 2008003171

PATIENT
  Sex: Male

DRUGS (2)
  1. TARCEVA [Suspect]
  2. FUCIDINE CAP [Suspect]

REACTIONS (2)
  - DRUG EFFECT DECREASED [None]
  - DRUG INTERACTION [None]
